FAERS Safety Report 8767283 (Version 1)
Quarter: 2012Q4

REPORT INFORMATION
  Report Type: 
  Country: US (occurrence: US)
  Receive Date: 20120904
  Receipt Date: 20120904
  Transmission Date: 20130627
  Serious: Yes (Death)
  Sender: FDA-Public Use
  Company Number: PHHY2012US076131

PATIENT
  Age: 62 Year
  Sex: Female

DRUGS (16)
  1. METHYLPHENIDATE [Suspect]
     Indication: ATTENTION DEFICIT/HYPERACTIVITY DISORDER
     Route: 048
  2. ACYCLOVIR [Concomitant]
  3. ATENOLOL [Concomitant]
  4. DULOXETINE [Concomitant]
  5. FUROSEMIDE [Concomitant]
  6. GABAPENTIN [Concomitant]
  7. POTASSIUM CHLORIDE [Concomitant]
  8. LEVALBUTEROL [Concomitant]
  9. LEVOTHYROXINE [Concomitant]
  10. MORPHINE [Concomitant]
  11. OXYCODONE [Concomitant]
  12. APAP [Concomitant]
  13. ESTROGENS CONJUGATED [Concomitant]
  14. PROCHLORPERAZINE [Concomitant]
  15. RANITIDINE [Concomitant]
  16. TRAZODONE [Concomitant]

REACTIONS (2)
  - Toxicity to various agents [Fatal]
  - Overdose [Fatal]
